FAERS Safety Report 13950188 (Version 1)
Quarter: 2017Q3

REPORT INFORMATION
  Report Type: Spontaneous
  Country: US (occurrence: US)
  Receive Date: 20170908
  Receipt Date: 20170908
  Transmission Date: 20171128
  Serious: No
  Sender: FDA-Public Use
  Company Number: US-ROCHE-1131393

PATIENT
  Sex: Female

DRUGS (2)
  1. VIOXX [Concomitant]
     Active Substance: ROFECOXIB
     Route: 065
  2. RITUXAN [Suspect]
     Active Substance: RITUXIMAB
     Indication: CHRONIC LYMPHOCYTIC LEUKAEMIA
     Route: 065
     Dates: start: 20000510

REACTIONS (2)
  - Feeling cold [Unknown]
  - Weight increased [Unknown]
